FAERS Safety Report 15789927 (Version 5)
Quarter: 2019Q2

REPORT INFORMATION
  Report Type: Report from Study
  Country: EG (occurrence: EG)
  Receive Date: 20190104
  Receipt Date: 20190619
  Transmission Date: 20190711
  Serious: Yes (Death, Hospitalization, Other)
  Sender: FDA-Public Use
  Company Number: EG-APOPHARMA-2018AP028324

PATIENT
  Age: 41 Year
  Sex: Female
  Weight: 70 kg

DRUGS (6)
  1. FOLIC ACID. [Concomitant]
     Active Substance: FOLIC ACID
     Indication: PROPHYLAXIS
     Dosage: 5 MG, QD
     Route: 048
     Dates: start: 1978, end: 20181218
  2. CALCIUM [Concomitant]
     Active Substance: CALCIUM
     Indication: OSTEOPOROSIS PROPHYLAXIS
     Dosage: 500 MG, QD
     Route: 048
     Dates: start: 1978, end: 20181218
  3. DEFERIPRONE [Suspect]
     Active Substance: DEFERIPRONE
     Indication: IRON OVERLOAD
  4. DEFERIPRONE [Suspect]
     Active Substance: DEFERIPRONE
     Indication: SICKLE CELL DISEASE
     Dosage: 25 MG/KG, TID
     Route: 048
     Dates: start: 20180910, end: 20181218
  5. L-CARNITINE                        /00878601/ [Concomitant]
     Active Substance: LEVOCARNITINE
     Indication: IMPAIRED QUALITY OF LIFE
     Dosage: 300 MG, TID
     Route: 048
     Dates: start: 1978, end: 20181218
  6. NOOTROPIL [Concomitant]
     Active Substance: PIRACETAM
     Indication: SICKLE CELL ANAEMIA WITH CRISIS
     Dosage: 800 MG, UNK
     Route: 048
     Dates: start: 1978, end: 20181218

REACTIONS (1)
  - Generalised oedema [Fatal]

NARRATIVE: CASE EVENT DATE: 20181218
